FAERS Safety Report 4924165-8 (Version None)
Quarter: 2006Q1

REPORT INFORMATION
  Report Type: 
  Country: None (occurrence: None)
  Receive Date: 20060227
  Receipt Date: 20051130
  Transmission Date: 20060701
  Serious: No
  Sender: FDA-Public Use
  Company Number: US-GLAXOSMITHKLINE-A0584066A

PATIENT
  Age: 69 Year
  Sex: Male

DRUGS (7)
  1. WELLBUTRIN XL [Suspect]
     Indication: DEPRESSION
     Dosage: 150MG PER DAY
     Route: 048
  2. RITALIN [Concomitant]
  3. COZAAR [Concomitant]
  4. CARDIZEM [Concomitant]
  5. NEXIUM [Concomitant]
  6. KLONOPIN [Concomitant]
  7. NYSTATIN [Concomitant]

REACTIONS (2)
  - ANXIETY [None]
  - BLOOD PRESSURE SYSTOLIC INCREASED [None]
